FAERS Safety Report 25723223 (Version 1)
Quarter: 2025Q3

REPORT INFORMATION
  Report Type: Spontaneous
  Country: CN (occurrence: CN)
  Receive Date: 20250825
  Receipt Date: 20250825
  Transmission Date: 20251021
  Serious: Yes (Other)
  Sender: NOVO NORDISK
  Company Number: CN-NOVOPROD-1504139

PATIENT

DRUGS (3)
  1. NOVORAPID [Suspect]
     Active Substance: INSULIN ASPART
     Indication: Product used for unknown indication
  2. NOVORAPID [Suspect]
     Active Substance: INSULIN ASPART
     Dates: start: 20250814
  3. NOVORAPID [Suspect]
     Active Substance: INSULIN ASPART

REACTIONS (5)
  - Ketosis [Unknown]
  - Ketonuria [Unknown]
  - Blood glucose increased [Unknown]
  - Drug ineffective [Unknown]
  - Product quality issue [Unknown]
